FAERS Safety Report 16979143 (Version 1)
Quarter: 2019Q4

REPORT INFORMATION
  Report Type: Spontaneous
  Country: US (occurrence: US)
  Receive Date: 20191031
  Receipt Date: 20191031
  Transmission Date: 20200122
  Serious: No
  Sender: FDA-Public Use
  Company Number: US-CIPLA LTD.-2019US04488

PATIENT

DRUGS (4)
  1. PREDNISONE. [Concomitant]
     Active Substance: PREDNISONE
     Indication: HYPONATRAEMIA
     Dosage: UNK
     Route: 065
  2. GABAPENTIN. [Suspect]
     Active Substance: GABAPENTIN
     Indication: RESTLESS LEGS SYNDROME
     Dosage: 300 MILLIGRAM, QD (ONCE A DAY AT NIGHT BEFORE BED) FOR A COUPLE MONTHS
     Route: 048
     Dates: start: 2019
  3. GABAPENTIN. [Suspect]
     Active Substance: GABAPENTIN
     Dosage: 600 MILLIGRAM, QD (DOSE INCREASED)
     Route: 048
     Dates: start: 2019
  4. GABAPENTIN. [Suspect]
     Active Substance: GABAPENTIN
     Dosage: 300 MILLIGRAM, QD
     Route: 048
     Dates: start: 2019

REACTIONS (6)
  - Off label use [Unknown]
  - Condition aggravated [Not Recovered/Not Resolved]
  - Poor quality sleep [Unknown]
  - Incorrect dose administered [Unknown]
  - Product use in unapproved indication [Unknown]
  - Insomnia [Unknown]

NARRATIVE: CASE EVENT DATE: 2019
